FAERS Safety Report 16992365 (Version 1)
Quarter: 2019Q4

REPORT INFORMATION
  Report Type: Spontaneous
  Country: US (occurrence: US)
  Receive Date: 20190920
  Receipt Date: 20190920
  Transmission Date: 20200122
  Serious: Yes (Life-Threatening, Disabling)
  Sender: FDA-Public Use
  Company Number: None

PATIENT
  Age: 78 Year
  Sex: Male
  Weight: 68.04 kg

DRUGS (33)
  1. ALPHA LIPOIC ACID [Concomitant]
     Active Substance: .ALPHA.-LIPOIC ACID
  2. CINSULIN [Concomitant]
  3. D-RIBOSE [Concomitant]
     Active Substance: DIETARY SUPPLEMENT
  4. FIBER PLUS [Concomitant]
  5. TAMSULOSIN [Concomitant]
     Active Substance: TAMSULOSIN
  6. TRIAZOLAM. [Concomitant]
     Active Substance: TRIAZOLAM
  7. CURCUMIN [Concomitant]
     Active Substance: CURCUMIN
  8. FISH OIL [Concomitant]
     Active Substance: FISH OIL
  9. MAGNESIUM [Concomitant]
     Active Substance: MAGNESIUM
  10. CALCIUM + MAGNESIUM [Concomitant]
  11. COSMOS [Concomitant]
  12. VITAMIN C [Concomitant]
     Active Substance: ASCORBIC ACID
  13. ALLEGRA ADULT 24 HOUR ALLERGY TABLETS [Concomitant]
  14. COQ10 UBIQUINOL [Concomitant]
  15. PYMOLOQUINOLINE QUINONE [Concomitant]
  16. SLO-NIACIN SYNAPTIN [Concomitant]
  17. VITAMIN E [Concomitant]
     Active Substance: .ALPHA.-TOCOPHEROL
  18. ELYSIUM BASIS [Concomitant]
  19. AMULTIVITAMIN [Concomitant]
  20. TOCOTRIENOIS [Concomitant]
  21. VITAMIN K [Concomitant]
     Active Substance: PHYTONADIONE
  22. ROSUVASTATIN CALCIUM 5MG [Suspect]
     Active Substance: ROSUVASTATIN CALCIUM
     Indication: BLOOD CHOLESTEROL INCREASED
     Dosage: ?          QUANTITY:5 MG MILLIGRAM(S);?
     Route: 048
     Dates: start: 20171129, end: 20180502
  23. BENFOTIAMINE [Concomitant]
     Active Substance: BENFOTIAMINE
  24. N-ACETYL CYSTEINE [Concomitant]
     Active Substance: ACETYLCYSTEINE
  25. LINISNOPRI [Concomitant]
  26. METOPROLOL. [Concomitant]
     Active Substance: METOPROLOL
  27. CPAP [Concomitant]
     Active Substance: DEVICE
  28. COLOSTRUMPRO [Concomitant]
  29. ACETYL=CARNITES [Concomitant]
  30. ALAWAY ANTIHISTAMINE EYE DROPS [Concomitant]
  31. METAMUCIL METHYLOCOBALAMIN [Concomitant]
  32. VITAMIN D3 [Concomitant]
     Active Substance: CHOLECALCIFEROL
  33. WHEY PROTEIN [Concomitant]
     Active Substance: WHEY

REACTIONS (2)
  - Fatigue [None]
  - Muscular weakness [None]

NARRATIVE: CASE EVENT DATE: 20180502
